FAERS Safety Report 5008110-5 (Version None)
Quarter: 2006Q1

REPORT INFORMATION
  Report Type: 
  Country: None (occurrence: None)
  Receive Date: 20060331
  Receipt Date: 20050707
  Transmission Date: 20060701
  Serious: Yes (Other)
  Sender: FDA-Public Use
  Company Number: WAES 0507USA00704

PATIENT
  Age: 56 Year
  Sex: Male

DRUGS (2)
  1. CANCIDAS [Suspect]
     Dosage: 50 MG/DAILY/IV
     Route: 042
     Dates: start: 20050702
  2. ANTINEOPLASTIC [Concomitant]

REACTIONS (1)
  - BLOOD POTASSIUM DECREASED [None]
